FAERS Safety Report 9501721 (Version 3)
Quarter: 2013Q4

REPORT INFORMATION
  Report Type: Report from Study
  Country: FR (occurrence: FR)
  Receive Date: 20130905
  Receipt Date: 20131220
  Transmission Date: 20140711
  Serious: Yes (Hospitalization)
  Sender: FDA-Public Use
  Company Number: FR-ASTRAZENECA-2013SE67205

PATIENT
  Age: 658 Month
  Sex: Female
  Weight: 72 kg

DRUGS (5)
  1. XEROQUEL [Suspect]
     Indication: BIPOLAR DISORDER
     Route: 048
     Dates: start: 20130220, end: 20130809
  2. ZYPREXA [Concomitant]
     Route: 048
     Dates: start: 20130618
  3. DEPAKOTE [Concomitant]
     Route: 048
     Dates: start: 20130618
  4. STILNOX [Concomitant]
     Route: 048
     Dates: start: 20130220
  5. TERALITHE [Concomitant]
     Route: 048
     Dates: start: 20011106, end: 20130309

REACTIONS (2)
  - Mania [Recovered/Resolved]
  - Drug ineffective [Unknown]
